FAERS Safety Report 20004397 (Version 2)
Quarter: 2021Q4

REPORT INFORMATION
  Report Type: Spontaneous
  Country: CA (occurrence: CA)
  Receive Date: 20211027
  Receipt Date: 20211108
  Transmission Date: 20220303
  Serious: Yes (Other)
  Sender: FDA-Public Use
  Company Number: CA-PFIZER INC-202101090981

PATIENT
  Age: 72 Year
  Sex: Female

DRUGS (8)
  1. RUXIENCE [Suspect]
     Active Substance: RITUXIMAB-PVVR
     Indication: Rheumatoid arthritis
     Dosage: 1000 MG DAY 1 AND DAY 15
     Route: 042
     Dates: start: 20211005
  2. RUXIENCE [Suspect]
     Active Substance: RITUXIMAB-PVVR
     Dosage: 1000 MG DAY 1 AND DAY 15
     Route: 042
     Dates: start: 20211025
  3. ACETAMINOPHEN [Concomitant]
     Active Substance: ACETAMINOPHEN
     Indication: Premedication
     Dosage: 650 MG
     Route: 048
     Dates: start: 20211025, end: 20211025
  4. CANDESARTAN [Concomitant]
     Active Substance: CANDESARTAN
     Dosage: 32 MG, 1X/DAY
     Route: 065
  5. DIPHENHYDRAMINE [Concomitant]
     Active Substance: DIPHENHYDRAMINE
     Indication: Premedication
     Dosage: 100 MG
     Route: 048
     Dates: start: 20211025, end: 20211025
  6. METHOTREXATE [Concomitant]
     Active Substance: METHOTREXATE
     Dosage: 1 DF
     Route: 065
  7. SOLU-MEDROL [Concomitant]
     Active Substance: METHYLPREDNISOLONE SODIUM SUCCINATE
     Indication: Premedication
     Dosage: 50 MG
     Route: 042
     Dates: start: 20211025, end: 20211025
  8. SULFASALAZINE [Concomitant]
     Active Substance: SULFASALAZINE
     Dosage: 1 DF

REACTIONS (16)
  - Neoplasm malignant [Unknown]
  - Hypertension [Recovered/Resolved]
  - Hypertension [Unknown]
  - Infusion related reaction [Recovered/Resolved]
  - Flushing [Recovered/Resolved]
  - Vomiting [Recovered/Resolved]
  - Paraesthesia [Recovered/Resolved]
  - Paraesthesia oral [Recovered/Resolved]
  - Muscular weakness [Recovered/Resolved]
  - Peripheral swelling [Recovered/Resolved]
  - Nausea [Recovered/Resolved]
  - Asthenia [Recovered/Resolved]
  - Dyspnoea [Recovered/Resolved]
  - Tongue disorder [Recovered/Resolved]
  - Condition aggravated [Unknown]
  - Malaise [Unknown]

NARRATIVE: CASE EVENT DATE: 20211001
